FAERS Safety Report 17228319 (Version 2)
Quarter: 2020Q1

REPORT INFORMATION
  Report Type: Spontaneous
  Country: US (occurrence: US)
  Receive Date: 20200103
  Receipt Date: 20200207
  Transmission Date: 20200409
  Serious: No
  Sender: FDA-Public Use
  Company Number: US-ASTRAZENECA-2019SF77147

PATIENT
  Age: 988 Month
  Sex: Female

DRUGS (1)
  1. SYMBICORT [Suspect]
     Active Substance: BUDESONIDE\FORMOTEROL FUMARATE DIHYDRATE
     Dosage: 160/4.5 MCG 2 INHALATIONS TWICE DAILY
     Route: 055

REACTIONS (5)
  - Device failure [Unknown]
  - Intentional device misuse [Recovered/Resolved]
  - Dyspnoea [Recovered/Resolved]
  - Device issue [Unknown]
  - Product taste abnormal [Unknown]

NARRATIVE: CASE EVENT DATE: 201910
